FAERS Safety Report 8292361-0 (Version None)
Quarter: 2012Q2

REPORT INFORMATION
  Report Type: 
  Country: None (occurrence: None)
  Receive Date: 20120417
  Receipt Date: 20111208
  Transmission Date: 20120825
  Serious: No
  Sender: FDA-Public Use
  Company Number: US-BAUSCH-2011BL008712

PATIENT
  Age: 61 Year
  Sex: Female

DRUGS (7)
  1. FLUNISOLIDE [Suspect]
     Indication: NASAL CONGESTION
     Route: 045
     Dates: start: 20111207, end: 20111207
  2. AMITRIPTYLINE HCL [Concomitant]
     Indication: PANIC ATTACK
     Route: 048
     Dates: start: 19950101
  3. CLARITIN /USA/ [Concomitant]
     Indication: HYPERSENSITIVITY
     Route: 048
  4. MULTI-VITAMINS [Concomitant]
  5. ZANTAC [Concomitant]
     Indication: GASTROOESOPHAGEAL REFLUX DISEASE
     Route: 048
     Dates: start: 19800101
  6. SYNTHROID [Concomitant]
     Indication: HYPOTHYROIDISM
     Route: 048
     Dates: start: 19810101
  7. CALCIUM WITH VITAMIN D [Concomitant]

REACTIONS (3)
  - RESPIRATORY TRACT IRRITATION [None]
  - INCREASED UPPER AIRWAY SECRETION [None]
  - NASAL DISCOMFORT [None]
